FAERS Safety Report 7899752-8 (Version None)
Quarter: 2011Q4

REPORT INFORMATION
  Report Type: 
  Country: None (occurrence: None)
  Receive Date: 20111107
  Receipt Date: 20110919
  Transmission Date: 20120403
  Serious: No
  Sender: FDA-Public Use
  Company Number: US-AMGEN-USASP2011048398

PATIENT
  Age: 51 Year
  Sex: Female
  Weight: 84.807 kg

DRUGS (10)
  1. ENBREL [Suspect]
     Indication: PRODUCT USED FOR UNKNOWN INDICATION
     Dosage: 50 MG, QWK
     Route: 058
  2. HYDROCHLOROTHIAZIDE [Concomitant]
     Dosage: 12.5 MG, UNK
  3. KLOR-CON [Concomitant]
     Dosage: 8 MEQ, UNK
  4. MOBIC [Concomitant]
     Dosage: 7.5 MG, UNK
  5. IRON [Concomitant]
     Dosage: 18 MG, UNK
  6. METHOTREXATE [Concomitant]
     Dosage: 1 G, UNK
  7. VITAMIN D [Concomitant]
     Dosage: 1000 IU, UNK
  8. ASPIRIN [Concomitant]
     Dosage: 81 MG, UNK
  9. FOLIC ACID [Concomitant]
     Dosage: 1 MG, UNK
  10. BYSTOLIC [Concomitant]
     Dosage: 10 MG, UNK

REACTIONS (1)
  - PAIN IN EXTREMITY [None]
